FAERS Safety Report 20816846 (Version 2)
Quarter: 2022Q2

REPORT INFORMATION
  Report Type: Spontaneous
  Country: MY (occurrence: MY)
  Receive Date: 20220512
  Receipt Date: 20220518
  Transmission Date: 20220721
  Serious: Yes (Other)
  Sender: FDA-Public Use
  Company Number: MY-TEVA-2022-MY-2035008

PATIENT
  Age: 69 Year
  Sex: Male

DRUGS (1)
  1. PREDNISOLONE [Suspect]
     Active Substance: PREDNISOLONE
     Indication: Nodular vasculitis
     Dosage: 10 MILLIGRAM DAILY;
     Route: 065

REACTIONS (3)
  - Nodular vasculitis [Recovered/Resolved]
  - Cutaneous sporotrichosis [Recovered/Resolved]
  - Disseminated sporotrichosis [Recovered/Resolved]

NARRATIVE: CASE EVENT DATE: 20160101
